FAERS Safety Report 9236901 (Version 3)
Quarter: 2013Q4

REPORT INFORMATION
  Report Type: Spontaneous
  Country: FR (occurrence: FR)
  Receive Date: 20130417
  Receipt Date: 20131204
  Transmission Date: 20140711
  Serious: Yes (Death)
  Sender: FDA-Public Use
  Company Number: FR-PFIZER INC-2013118724

PATIENT
  Age: 1 Day
  Sex: Male
  Weight: 4.1 kg

DRUGS (2)
  1. CYTOTEC [Suspect]
     Dosage: 25 UG, SINGLE
     Route: 064
     Dates: start: 20130208, end: 20130208
  2. INSULIN [Concomitant]
     Route: 064

REACTIONS (4)
  - Maternal exposure during delivery [Fatal]
  - Cardio-respiratory arrest neonatal [Fatal]
  - Neonatal anoxia [Fatal]
  - Wrong technique in drug usage process [Unknown]
